FAERS Safety Report 5362745-9 (Version None)
Quarter: 2007Q2

REPORT INFORMATION
  Report Type: 
  Country: None (occurrence: None)
  Receive Date: 20070619
  Receipt Date: 20070607
  Transmission Date: 20071010
  Serious: Yes (Other)
  Sender: FDA-Public Use
  Company Number: US-PFIZER INC-2007047166

PATIENT
  Sex: Female

DRUGS (1)
  1. DIFLUCAN [Suspect]
     Indication: VAGINAL CANDIDIASIS

REACTIONS (7)
  - BACK PAIN [None]
  - BLOOD PRESSURE SYSTOLIC INCREASED [None]
  - DYSPNOEA [None]
  - PRURITUS [None]
  - PYREXIA [None]
  - SWELLING [None]
  - TACHYCARDIA [None]
